FAERS Safety Report 6159608-8 (Version None)
Quarter: 2009Q2

REPORT INFORMATION
  Report Type: 
  Country: None (occurrence: None)
  Receive Date: 20090420
  Receipt Date: 20090409
  Transmission Date: 20091009
  Serious: Yes (Other)
  Sender: FDA-Public Use
  Company Number: GB-JNJFOC-20090402761

PATIENT
  Age: 68 Year
  Sex: Female
  Weight: 92 kg

DRUGS (10)
  1. REMICADE [Suspect]
     Route: 042
  2. REMICADE [Suspect]
     Indication: RHEUMATOID ARTHRITIS
     Route: 042
  3. METHOTREXATE [Concomitant]
  4. PREDNISONE [Concomitant]
  5. CALCICHEW [Concomitant]
  6. ACETAMINOPHEN WITH PROPOXYPHENE HCL TAB [Concomitant]
  7. DIHYDROCODEINE BITARTRATE INJ [Concomitant]
  8. FOLIC ACID [Concomitant]
  9. HORMONE REPLACEMENT THERAPY [Concomitant]
  10. LANSOPRAZOLE [Concomitant]

REACTIONS (1)
  - ANAL CANCER [None]
